FAERS Safety Report 17476884 (Version 1)
Quarter: 2020Q1

REPORT INFORMATION
  Report Type: Report from Study
  Country: JP (occurrence: JP)
  Receive Date: 20200228
  Receipt Date: 20200228
  Transmission Date: 20200409
  Serious: Yes (Hospitalization, Other)
  Sender: FDA-Public Use
  Company Number: JP-JNJFOC-20191042049

PATIENT
  Age: 73 Year
  Sex: Female
  Weight: 69 kg

DRUGS (19)
  1. ALFACALCIDOL [Concomitant]
     Active Substance: ALFACALCIDOL
     Route: 065
  2. LOXOPROFEN SODIUM [Concomitant]
     Active Substance: LOXOPROFEN SODIUM
     Route: 065
     Dates: start: 20160720
  3. SIMPONI [Suspect]
     Active Substance: GOLIMUMAB
     Indication: PRODUCT USED FOR UNKNOWN INDICATION
     Route: 058
     Dates: start: 20161201, end: 20180314
  4. PREDNISOLONE. [Suspect]
     Active Substance: PREDNISOLONE
     Indication: PRODUCT USED FOR UNKNOWN INDICATION
     Route: 065
     Dates: start: 20070116, end: 20180403
  5. DAIPHEN [Concomitant]
     Active Substance: SULFAMETHOXAZOLE\TRIMETHOPRIM
     Route: 065
  6. ULTRACET [Concomitant]
     Active Substance: ACETAMINOPHEN\TRAMADOL HYDROCHLORIDE
     Route: 065
  7. CALONAL [Concomitant]
     Active Substance: ACETAMINOPHEN
     Route: 065
     Dates: start: 20160802
  8. MS HOT PACK [Concomitant]
     Route: 065
     Dates: start: 20160623
  9. TOFACITINIB CITRATE [Suspect]
     Active Substance: TOFACITINIB CITRATE
     Indication: RHEUMATOID ARTHRITIS
     Route: 048
     Dates: start: 20160715, end: 20161107
  10. VALIXA [Concomitant]
     Active Substance: VALGANCICLOVIR
     Route: 065
     Dates: start: 20160720
  11. RHEUMATREX [Suspect]
     Active Substance: METHOTREXATE SODIUM
     Route: 065
     Dates: start: 20171204, end: 20180207
  12. CARERAM [Concomitant]
     Active Substance: IGURATIMOD
     Route: 065
     Dates: start: 20150409, end: 20180110
  13. MAGMITT [Concomitant]
     Active Substance: MAGNESIUM OXIDE
     Route: 065
  14. RHEUMATREX [Suspect]
     Active Substance: METHOTREXATE SODIUM
     Indication: RHEUMATOID ARTHRITIS
     Route: 065
     Dates: end: 20171203
  15. FLURBIPROFEN. [Concomitant]
     Active Substance: FLURBIPROFEN
     Route: 065
  16. PREDNISOLONE. [Suspect]
     Active Substance: PREDNISOLONE
     Route: 065
     Dates: start: 20180404
  17. LANSOPRAZOLE. [Concomitant]
     Active Substance: LANSOPRAZOLE
     Route: 065
  18. PANVITAN                           /05664201/ [Concomitant]
     Active Substance: VITAMINS
     Route: 065
  19. VALTREX [Concomitant]
     Active Substance: VALACYCLOVIR HYDROCHLORIDE
     Route: 065
     Dates: start: 20160719

REACTIONS (2)
  - Pneumonia aspiration [Recovered/Resolved]
  - Pneumonia [Recovered/Resolved]

NARRATIVE: CASE EVENT DATE: 20170918
